FAERS Safety Report 10563204 (Version 1)
Quarter: 2014Q4

REPORT INFORMATION
  Report Type: Spontaneous
  Country: US (occurrence: None)
  Receive Date: 20141103
  Receipt Date: 20141103
  Transmission Date: 20150529
  Serious: No
  Sender: FDA-Public Use
  Company Number: None

PATIENT
  Age: 67 Year
  Sex: Female

DRUGS (1)
  1. AMOXICILLIN. [Suspect]
     Active Substance: AMOXICILLIN
     Indication: TOOTH ABSCESS
     Dosage: THREE TIMES DAILY TAKEN BY MOUTH
     Route: 048
     Dates: start: 20141004, end: 20141011

REACTIONS (2)
  - Asthma [None]
  - Rash generalised [None]

NARRATIVE: CASE EVENT DATE: 20141012
